FAERS Safety Report 8448460-3 (Version None)
Quarter: 2012Q2

REPORT INFORMATION
  Report Type: 
  Country: None (occurrence: None)
  Receive Date: 20120619
  Receipt Date: 20120606
  Transmission Date: 20120825
  Serious: Yes (Other)
  Sender: FDA-Public Use
  Company Number: US-BAYER-2012-057099

PATIENT
  Age: 64 Year
  Sex: Male
  Weight: 88.435 kg

DRUGS (4)
  1. ASPIRIN [Suspect]
     Indication: ISCHAEMIC HEART DISEASE PROPHYLAXIS
     Dosage: 1 U, QD
     Route: 048
     Dates: start: 20120501, end: 20120501
  2. CHOLESTEROL [Concomitant]
  3. HIGH BLOOD PRESSURE PILL [Concomitant]
  4. SUGAR PILL [Concomitant]

REACTIONS (2)
  - CHEST PAIN [None]
  - HAEMATOCHEZIA [None]
